FAERS Safety Report 24332063 (Version 1)
Quarter: 2024Q3

REPORT INFORMATION
  Report Type: Spontaneous
  Country: CA (occurrence: CA)
  Receive Date: 20240918
  Receipt Date: 20240918
  Transmission Date: 20241016
  Serious: Yes (Other)
  Sender: ASCEND
  Company Number: CA-Ascend Therapeutics US, LLC-2161733

PATIENT
  Sex: Female

DRUGS (3)
  1. ESTROGEL [Suspect]
     Active Substance: ESTRADIOL
     Indication: Product used for unknown indication
     Dates: start: 2023
  2. ESTROGEL [Suspect]
     Active Substance: ESTRADIOL
     Dates: start: 2023
  3. PROMETRIUM [Suspect]
     Active Substance: PROGESTERONE
     Dates: start: 2023

REACTIONS (9)
  - Cyst [Recovered/Resolved]
  - Headache [Not Recovered/Not Resolved]
  - Abdominal pain [Not Recovered/Not Resolved]
  - Fatigue [Not Recovered/Not Resolved]
  - Dizziness [Not Recovered/Not Resolved]
  - Insomnia [Not Recovered/Not Resolved]
  - Anxiety [Not Recovered/Not Resolved]
  - Vulvovaginal pain [Not Recovered/Not Resolved]
  - Dyspnoea [Not Recovered/Not Resolved]
